FAERS Safety Report 24989673 (Version 1)
Quarter: 2025Q1

REPORT INFORMATION
  Report Type: Spontaneous
  Country: SE (occurrence: SE)
  Receive Date: 20250220
  Receipt Date: 20250220
  Transmission Date: 20250409
  Serious: Yes (Death)
  Sender: ACCORD
  Company Number: None

PATIENT
  Age: 77 Year
  Sex: Female

DRUGS (4)
  1. METHOTREXATE [Suspect]
     Active Substance: METHOTREXATE
     Indication: Rheumatoid arthritis
     Dosage: STRENGTH: 2.5 MG
     Dates: start: 20241227
  2. IRON [Suspect]
     Active Substance: IRON
     Indication: Iron deficiency
     Dates: start: 20241213, end: 20241213
  3. TAMIFLU [Suspect]
     Active Substance: OSELTAMIVIR PHOSPHATE
     Indication: Influenza
     Dosage: STRENGTH: OSELTAMIVIR PHOSPHATE 98.5 MG AND OSELTAMIVIR 75 MG
     Dates: start: 20241222, end: 20241226
  4. CEFOTAXIME [Concomitant]
     Active Substance: CEFOTAXIME SODIUM
     Dates: start: 20250102

REACTIONS (8)
  - Peritonitis [Fatal]
  - Intestinal ischaemia [Fatal]
  - Mesenteric artery thrombosis [Fatal]
  - Confusional state [Fatal]
  - Gastric dilatation [Fatal]
  - Pyrexia [Fatal]
  - Pneumonia [Fatal]
  - Ileus [Fatal]

NARRATIVE: CASE EVENT DATE: 20250101
